FAERS Safety Report 16304858 (Version 3)
Quarter: 2019Q2

REPORT INFORMATION
  Report Type: Spontaneous
  Country: FR (occurrence: FR)
  Receive Date: 20190513
  Receipt Date: 20190607
  Transmission Date: 20190711
  Serious: Yes (Death, Other)
  Sender: FDA-Public Use
  Company Number: FR-JAZZ-2019-FR-002204

PATIENT
  Age: 54 Year
  Sex: Male
  Weight: 59 kg

DRUGS (1)
  1. VYXEOS [Suspect]
     Active Substance: CYTARABINE\DAUNORUBICIN
     Indication: ACUTE MYELOID LEUKAEMIA
     Dosage: 100MG/M2 AND 44 MG/M2 DAYS 1,3 AND 5
     Route: 042
     Dates: start: 20190107, end: 20190111

REACTIONS (3)
  - Bone marrow failure [Fatal]
  - Septic shock [Fatal]
  - Multiple organ dysfunction syndrome [Fatal]

NARRATIVE: CASE EVENT DATE: 20190126
